FAERS Safety Report 15753927 (Version 2)
Quarter: 2019Q1

REPORT INFORMATION
  Report Type: Spontaneous
  Country: BR (occurrence: BR)
  Receive Date: 20181222
  Receipt Date: 20190102
  Transmission Date: 20190417
  Serious: Yes (Other)
  Sender: FDA-Public Use
  Company Number: BR-009507513-1811BRA009232

PATIENT
  Age: 62 Year
  Sex: Female
  Weight: 55 kg

DRUGS (1)
  1. NITES [Suspect]
     Active Substance: MOMETASONE FUROATE
     Indication: ACUTE SINUSITIS
     Dosage: 50 MICROGRAM
     Dates: start: 201807, end: 201811

REACTIONS (7)
  - Cataract [Unknown]
  - Balance disorder [Recovered/Resolved]
  - Product use in unapproved indication [Unknown]
  - Dysgeusia [Recovered/Resolved]
  - Malaise [Recovered/Resolved]
  - Product use issue [Unknown]
  - Feeling abnormal [Recovered/Resolved]

NARRATIVE: CASE EVENT DATE: 201807
